FAERS Safety Report 6214382-1 (Version None)
Quarter: 2009Q2

REPORT INFORMATION
  Report Type: 
  Country: None (occurrence: None)
  Receive Date: 20090602
  Receipt Date: 20090518
  Transmission Date: 20091009
  Serious: Yes (Other)
  Sender: FDA-Public Use
  Company Number: 2009001516

PATIENT
  Age: 90 Year
  Sex: Female

DRUGS (1)
  1. TARCEVA [Suspect]
     Indication: LUNG SQUAMOUS CELL CARCINOMA STAGE UNSPECIFIED
     Dosage: (150 MG),ORAL
     Route: 048
     Dates: start: 20090324

REACTIONS (8)
  - DIARRHOEA [None]
  - DRUG INEFFECTIVE [None]
  - HAEMOPTYSIS [None]
  - MOUTH ULCERATION [None]
  - NEOPLASM PROGRESSION [None]
  - SKIN EXFOLIATION [None]
  - SKIN FISSURES [None]
  - SKIN ULCER [None]
